FAERS Safety Report 12065340 (Version 1)
Quarter: 2016Q1

REPORT INFORMATION
  Report Type: Spontaneous
  Country: US (occurrence: US)
  Receive Date: 20160210
  Receipt Date: 20160210
  Transmission Date: 20160526
  Serious: No
  Sender: FDA-Public Use
  Company Number: US-ALLERGAN-1509577US

PATIENT
  Sex: Female

DRUGS (3)
  1. BOTOX COSMETIC [Suspect]
     Active Substance: ONABOTULINUMTOXINA
     Indication: PRODUCT USED FOR UNKNOWN INDICATION
     Dosage: 8 UNITS, SITE OF ADMINISTRATION: BROW, SINGLE
     Route: 030
     Dates: start: 20150513, end: 20150513
  2. BOTOX COSMETIC [Suspect]
     Active Substance: ONABOTULINUMTOXINA
     Dosage: 10 UNITS,NOT SPECIFIED, SINGLE
     Route: 030
     Dates: start: 20150513, end: 20150513
  3. BOTOX COSMETIC [Suspect]
     Active Substance: ONABOTULINUMTOXINA
     Dosage: 8 UNITS, SITE OF ADMINISTRATION: BROW, SINGLE
     Route: 030
     Dates: start: 20150513, end: 20150513

REACTIONS (1)
  - Drug ineffective [Unknown]
